FAERS Safety Report 23418551 (Version 1)
Quarter: 2024Q1

REPORT INFORMATION
  Report Type: Spontaneous
  Country: US (occurrence: US)
  Receive Date: 20240118
  Receipt Date: 20240118
  Transmission Date: 20240410
  Serious: No
  Sender: FDA-Public Use
  Company Number: US-BRISTOL-MYERS SQUIBB COMPANY-2024-006513

PATIENT
  Age: 74 Year
  Sex: Male

DRUGS (1)
  1. REVLIMID [Suspect]
     Active Substance: LENALIDOMIDE
     Indication: Anticoagulant therapy
     Route: 048
     Dates: start: 20160812, end: 20221017

REACTIONS (6)
  - Lethargy [Unknown]
  - Bone pain [Unknown]
  - Weight increased [Unknown]
  - Dyspnoea [Unknown]
  - Constipation [Unknown]
  - Off label use [Unknown]
